FAERS Safety Report 17893977 (Version 1)
Quarter: 2020Q2

REPORT INFORMATION
  Report Type: Other
  Country: US (occurrence: US)
  Receive Date: 20200615
  Receipt Date: 20200615
  Transmission Date: 20200714
  Serious: Yes (Hospitalization)
  Sender: FDA-Public Use
  Company Number: US-ORCHID HEALTHCARE-2085808

PATIENT
  Age: 64 Year
  Sex: Female

DRUGS (2)
  1. LEVOTHYROXINE. [Concomitant]
     Active Substance: LEVOTHYROXINE
     Route: 065
  2. AMLODIPINE BESYLATE. [Suspect]
     Active Substance: AMLODIPINE BESYLATE
     Route: 065

REACTIONS (10)
  - Leukocytosis [Recovered/Resolved]
  - Hypotension [Recovered/Resolved]
  - Ischaemia [Not Recovered/Not Resolved]
  - Acute kidney injury [Recovered/Resolved]
  - Metabolic acidosis [Recovered/Resolved]
  - Overdose [Recovered/Resolved]
  - Rhabdomyolysis [Recovered/Resolved]
  - Shock [Recovered/Resolved]
  - Harlequin syndrome [Recovered/Resolved]
  - Liver injury [Recovered/Resolved]
